FAERS Safety Report 18326210 (Version 1)
Quarter: 2020Q3

REPORT INFORMATION
  Report Type: Spontaneous
  Country: JP (occurrence: JP)
  Receive Date: 20200929
  Receipt Date: 20200929
  Transmission Date: 20201103
  Serious: Yes (Hospitalization, Disabling)
  Sender: FDA-Public Use
  Company Number: JP-JNJFOC-20200837369

PATIENT
  Age: 85 Year
  Sex: Male
  Weight: 60 kg

DRUGS (4)
  1. XARELTO [Suspect]
     Active Substance: RIVAROXABAN
     Indication: ATRIAL FIBRILLATION
     Dosage: 10 MG, QD
     Route: 048
     Dates: start: 20180127
  2. XARELTO [Suspect]
     Active Substance: RIVAROXABAN
     Indication: CEREBROVASCULAR ACCIDENT PROPHYLAXIS
     Route: 048
  3. MAGMITT [Concomitant]
     Active Substance: MAGNESIUM OXIDE
     Dosage: 660MG ONE DAY
     Route: 048
     Dates: start: 20180702, end: 20200130
  4. VASOLAN                            /00019902/ [Concomitant]
     Indication: ATRIAL FIBRILLATION
     Dosage: 40MG ONE DAY
     Route: 048
     Dates: start: 20180127

REACTIONS (7)
  - Gait disturbance [Recovered/Resolved with Sequelae]
  - Aphasia [Unknown]
  - Pyrexia [Unknown]
  - Headache [Recovered/Resolved with Sequelae]
  - Cerebral haemorrhage [Recovered/Resolved with Sequelae]
  - Cognitive disorder [Unknown]
  - Dysphagia [Unknown]

NARRATIVE: CASE EVENT DATE: 20200411
